FAERS Safety Report 20977707 (Version 1)
Quarter: 2022Q2

REPORT INFORMATION
  Report Type: Spontaneous
  Country: US (occurrence: US)
  Receive Date: 20220618
  Receipt Date: 20220618
  Transmission Date: 20220721
  Serious: No
  Sender: FDA-Public Use
  Company Number: US-UNITED THERAPEUTICS-UNT-2022-013344

PATIENT
  Sex: Male

DRUGS (4)
  1. REMODULIN [Suspect]
     Active Substance: TREPROSTINIL
     Indication: Pulmonary arterial hypertension
     Dosage: UNK, CONTINUING
     Route: 058
     Dates: start: 20220422
  2. REMODULIN [Suspect]
     Active Substance: TREPROSTINIL
     Dosage: 0.01751 ?G/KG (AT INFUSION RATE 25 MICROL/HR), CONTINUING
     Route: 058
     Dates: start: 2022, end: 202205
  3. REMODULIN [Suspect]
     Active Substance: TREPROSTINIL
     Dosage: 0.02171 ?G/KG (AT INFUSION RATE 31 MICROL/HR), CONTINUING
     Route: 058
     Dates: start: 202205
  4. AMBRISENTAN [Concomitant]
     Active Substance: AMBRISENTAN
     Indication: Product used for unknown indication
     Dosage: UNK
     Route: 065

REACTIONS (3)
  - Headache [Unknown]
  - Device power source issue [Recovered/Resolved]
  - Needle issue [Unknown]

NARRATIVE: CASE EVENT DATE: 20220101
